FAERS Safety Report 18000029 (Version 1)
Quarter: 2020Q3

REPORT INFORMATION
  Report Type: Spontaneous
  Country: US (occurrence: US)
  Receive Date: 20200709
  Receipt Date: 20200709
  Transmission Date: 20201103
  Serious: No
  Sender: FDA-Public Use
  Company Number: None

PATIENT
  Age: 78 Year
  Sex: Female

DRUGS (2)
  1. TEMOZOLOMIDE. [Suspect]
     Active Substance: TEMOZOLOMIDE
     Indication: GASTROENTEROPANCREATIC NEUROENDOCRINE TUMOUR DISEASE
     Route: 048
     Dates: start: 20200402
  2. TEMOZOLOMIDE 140MG CAPSULES [Concomitant]
     Dates: start: 20200402

REACTIONS (5)
  - Hypertension [None]
  - Blood pressure systolic increased [None]
  - Vomiting [None]
  - Food intolerance [None]
  - Hypertensive crisis [None]

NARRATIVE: CASE EVENT DATE: 20200708
